FAERS Safety Report 8249324-0 (Version None)
Quarter: 2012Q1

REPORT INFORMATION
  Report Type: 
  Country: None (occurrence: None)
  Receive Date: 20120316
  Receipt Date: 20120306
  Transmission Date: 20120608
  Serious: Yes (Other)
  Sender: FDA-Public Use
  Company Number: 2012031526

PATIENT
  Age: 78 Year
  Sex: Female
  Weight: 56.6996 kg

DRUGS (15)
  1. ROBITUSSIN COUGH (NOVAHISTINE DMX) [Concomitant]
  2. LEVOFLOXACIN [Concomitant]
  3. IRON (IRON) [Concomitant]
  4. ASPIRIN [Concomitant]
  5. HIZENTRA [Suspect]
     Indication: IMMUNODEFICIENCY COMMON VARIABLE
     Dosage: (7 G 1X/WEEK, 1 G (5 ML) ON 2 SITES OVER 1-2 HOURS), (2 GM (10 ML) SUBCUTANEOUS), (4 GM (20 ML) SUB
     Route: 058
     Dates: start: 20110101, end: 20120305
  6. HIZENTRA [Suspect]
     Indication: IMMUNODEFICIENCY COMMON VARIABLE
     Dosage: (7 G 1X/WEEK, 1 G (5 ML) ON 2 SITES OVER 1-2 HOURS), (2 GM (10 ML) SUBCUTANEOUS), (4 GM (20 ML) SUB
     Route: 058
     Dates: start: 20100519
  7. HIZENTRA [Suspect]
  8. OMEPRAZOLE [Concomitant]
  9. METOPROLOL TARTRATE [Concomitant]
  10. COENZYME Q10 [Concomitant]
  11. ALLEGRA [Concomitant]
  12. HIZENTRA [Suspect]
  13. SIMVASTATIN [Concomitant]
  14. ASCORBIC ACID [Concomitant]
  15. MULTIVITAMIN (MULTIVITAMIN /00831701/) [Concomitant]

REACTIONS (6)
  - INFUSION SITE SWELLING [None]
  - TOOTH INFECTION [None]
  - INFECTION [None]
  - LACERATION [None]
  - PNEUMONIA [None]
  - INFUSION SITE HAEMORRHAGE [None]
